FAERS Safety Report 5228884-8 (Version None)
Quarter: 2007Q1

REPORT INFORMATION
  Report Type: 
  Country: None (occurrence: None)
  Receive Date: 20070205
  Receipt Date: 20070117
  Transmission Date: 20070707
  Serious: Yes (Hospitalization)
  Sender: FDA-Public Use
  Company Number: US-BRISTOL-MYERS SQUIBB COMPANY-13656509

PATIENT
  Age: 66 Year
  Sex: Male

DRUGS (8)
  1. PRINIVIL [Suspect]
     Route: 048
  2. POTASSIUM CHLORIDE [Suspect]
     Route: 048
  3. ASPIRIN [Concomitant]
  4. FUROSEMIDE [Concomitant]
  5. GLYBURIDE [Concomitant]
  6. METFORMIN HCL [Concomitant]
  7. METOPROLOL TARTRATE [Concomitant]
  8. SIMVASTATIN [Concomitant]

REACTIONS (5)
  - CARDIAC FAILURE CONGESTIVE [None]
  - ECHOCARDIOGRAM ABNORMAL [None]
  - HYPERKALAEMIA [None]
  - HYPERTENSION [None]
  - RENAL IMPAIRMENT [None]
